FAERS Safety Report 21034372 (Version 2)
Quarter: 2022Q3

REPORT INFORMATION
  Report Type: Spontaneous
  Country: BR (occurrence: BR)
  Receive Date: 20220701
  Receipt Date: 20220707
  Transmission Date: 20221026
  Serious: Yes (Life-Threatening, Other)
  Sender: FDA-Public Use
  Company Number: BR-PFIZER INC-202200867173

PATIENT
  Age: 68 Year
  Sex: Female
  Weight: 47 kg

DRUGS (16)
  1. LORAZEPAM [Suspect]
     Active Substance: LORAZEPAM
     Indication: Sleep disorder
     Dosage: 4 MG
     Dates: start: 2019, end: 2020
  2. LORAZEPAM [Suspect]
     Active Substance: LORAZEPAM
     Indication: Depression
     Dosage: 4 MG
  3. LIMBITROL [Suspect]
     Active Substance: AMITRIPTYLINE\CHLORDIAZEPOXIDE
     Indication: Depression
     Dosage: 2 MG, 3X/DAY
  4. LIMBITROL [Suspect]
     Active Substance: AMITRIPTYLINE\CHLORDIAZEPOXIDE
     Dosage: 1 MG, 1X/DAY
  5. EUTHYROX [Concomitant]
     Active Substance: LEVOTHYROXINE SODIUM
     Indication: Hyperthyroidism
     Dosage: UNK
  6. ELECTROLYTES NOS\POLYETHYLENE GLYCOL 3350 [Concomitant]
     Active Substance: ELECTROLYTES NOS\POLYETHYLENE GLYCOL 3350
     Indication: Constipation
     Dosage: UNK
     Dates: start: 2019
  7. VENLAFAXINE [Concomitant]
     Active Substance: VENLAFAXINE HYDROCHLORIDE
     Indication: Depression
     Dosage: UNK
  8. MINERALS\VITAMINS [Concomitant]
     Active Substance: MINERALS\VITAMINS
     Indication: Vitamin supplementation
     Dosage: UNK
     Dates: start: 2019
  9. RAPILAX [SODIUM PICOSULFATE] [Concomitant]
     Indication: Constipation
     Dosage: UNK
     Dates: start: 2019
  10. LORAZEPAM [Concomitant]
     Active Substance: LORAZEPAM
     Indication: Insomnia
     Dosage: UNK
  11. LORAZEPAM [Concomitant]
     Active Substance: LORAZEPAM
     Indication: Depression
  12. LOSARTAN [Concomitant]
     Active Substance: LOSARTAN
     Indication: Blood pressure increased
     Dosage: UNK
  13. SIMVASTATIN [Concomitant]
     Active Substance: SIMVASTATIN
     Indication: Blood cholesterol increased
     Dosage: UNK
  14. VITAMIN D NOS [Concomitant]
     Active Substance: VITAMIN D NOS
     Dosage: UNK, WEEKLY
  15. VITAMIN B6 [Concomitant]
     Active Substance: PYRIDOXINE HYDROCHLORIDE
  16. ARGININE ASPARTATE [Concomitant]
     Active Substance: ARGININE ASPARTATE

REACTIONS (24)
  - Insomnia [Not Recovered/Not Resolved]
  - Drug dependence [Not Recovered/Not Resolved]
  - Depression [Not Recovered/Not Resolved]
  - Chronic kidney disease [Unknown]
  - Aortic arteriosclerosis [Unknown]
  - Drug effective for unapproved indication [Not Recovered/Not Resolved]
  - Off label use [Unknown]
  - Mental disorder [Unknown]
  - Condition aggravated [Unknown]
  - Retinal drusen [Unknown]
  - Visual impairment [Unknown]
  - Intentional product misuse [Unknown]
  - Feeling abnormal [Unknown]
  - Thyroid disorder [Unknown]
  - Gastrointestinal injury [Unknown]
  - Diverticulum intestinal [Unknown]
  - Weight decreased [Unknown]
  - Blood cholesterol abnormal [Unknown]
  - Hypertension [Unknown]
  - Abdominal discomfort [Unknown]
  - Vascular calcification [Unknown]
  - Abdominal pain [Unknown]
  - Palpitations [Unknown]
  - Asthenia [Unknown]
